FAERS Safety Report 4283411-7 (Version None)
Quarter: 2004Q1

REPORT INFORMATION
  Report Type: 
  Country: None (occurrence: None)
  Receive Date: 20040129
  Receipt Date: 20040129
  Transmission Date: 20041129
  Serious: Yes (Hospitalization)
  Sender: FDA-Public Use
  Company Number: None

PATIENT
  Age: 59 Year
  Sex: Female
  Weight: 69.4 kg

DRUGS (6)
  1. MEGACE [Suspect]
     Indication: APPETITE DISORDER
     Dates: start: 20030808
  2. VERAPAMIL [Concomitant]
  3. PREVACID [Concomitant]
  4. LISINOPRIL [Concomitant]
  5. BEELITH [Concomitant]
  6. HUMULIN 70/30 [Concomitant]

REACTIONS (2)
  - HAEMORRHAGE [None]
  - MEDICATION ERROR [None]
